FAERS Safety Report 12222321 (Version 1)
Quarter: 2016Q1

REPORT INFORMATION
  Report Type: Spontaneous
  Country: CN (occurrence: CN)
  Receive Date: 20160330
  Receipt Date: 20160330
  Transmission Date: 20160526
  Serious: Yes (Life-Threatening)
  Sender: FDA-Public Use
  Company Number: CN-BAXTER-2016BAX016334

PATIENT
  Age: 33 Year
  Sex: Female
  Weight: 50 kg

DRUGS (4)
  1. INVERT SUGAR ELECTROLYTE [Suspect]
     Active Substance: INVERT SUGAR
     Indication: SUPPORTIVE CARE
     Route: 041
     Dates: start: 20150701, end: 20150701
  2. SODIUM CHLORIDE PHYSIOLOGICAL SOLUTION [Suspect]
     Active Substance: SODIUM CHLORIDE
     Indication: INFUSION
     Route: 041
     Dates: start: 20150701, end: 20150701
  3. REDUCED GLUTATHIONE SODIUM [Suspect]
     Active Substance: GLUTATHIONE
     Indication: PROPHYLAXIS
     Route: 041
     Dates: start: 20150701, end: 20150701
  4. SODIUM CEFODIZIME [Suspect]
     Active Substance: CEFODIZIME SODIUM
     Indication: INFECTION
     Dosage: 4/5TH OF 2 GRAMS
     Route: 041
     Dates: start: 20150701, end: 20150701

REACTIONS (1)
  - Anaphylactic shock [Recovering/Resolving]

NARRATIVE: CASE EVENT DATE: 20150701
